FAERS Safety Report 24463877 (Version 1)
Quarter: 2024Q4

REPORT INFORMATION
  Report Type: Report from Study
  Country: US (occurrence: US)
  Receive Date: 20241018
  Receipt Date: 20241018
  Transmission Date: 20250115
  Serious: No
  Sender: ROCHE
  Company Number: US-ROCHE-3355346

PATIENT
  Age: 68 Year
  Sex: Female

DRUGS (32)
  1. XOLAIR [Suspect]
     Active Substance: OMALIZUMAB
     Indication: Chronic obstructive pulmonary disease
     Route: 058
  2. XOLAIR [Suspect]
     Active Substance: OMALIZUMAB
  3. LORATADINE [Concomitant]
     Active Substance: LORATADINE
  4. BENADRYL ALLERGY [Concomitant]
     Active Substance: DIPHENHYDRAMINE HYDROCHLORIDE
  5. FLONASE ALLERGY RELIEF [Concomitant]
     Active Substance: FLUTICASONE PROPIONATE
  6. NASONEX [Concomitant]
     Active Substance: MOMETASONE FUROATE
  7. PROAIR HFA [Concomitant]
     Active Substance: ALBUTEROL SULFATE
  8. SINGULAIR [Concomitant]
     Active Substance: MONTELUKAST SODIUM
  9. NASACORT ALLERGY 24HR [Concomitant]
     Active Substance: TRIAMCINOLONE ACETONIDE
  10. AMLODIPINE BESYLATE [Concomitant]
     Active Substance: AMLODIPINE BESYLATE
  11. AMITRIPTYLINE HYDROCHLORIDE [Concomitant]
     Active Substance: AMITRIPTYLINE HYDROCHLORIDE
  12. ATIVAN [Concomitant]
     Active Substance: LORAZEPAM
  13. LIOTHYRONINE SODIUM [Concomitant]
     Active Substance: LIOTHYRONINE SODIUM
  14. EUTHYROX [Concomitant]
     Active Substance: LEVOTHYROXINE SODIUM
  15. PRAVASTATIN SODIUM [Concomitant]
     Active Substance: PRAVASTATIN SODIUM
  16. METOPROLOL SUCCINATE [Concomitant]
     Active Substance: METOPROLOL SUCCINATE
  17. METOPROLOL SUCCINATE [Concomitant]
     Active Substance: METOPROLOL SUCCINATE
  18. TRAZODONE HCL [Concomitant]
     Active Substance: TRAZODONE HYDROCHLORIDE
  19. DOXEPIN HYDROCHLORIDE [Concomitant]
     Active Substance: DOXEPIN HYDROCHLORIDE
  20. METFORMIN HYDROCHLORIDE [Concomitant]
     Active Substance: METFORMIN HYDROCHLORIDE
  21. PRISTIQ EXTENDED-RELEASE [Concomitant]
     Active Substance: DESVENLAFAXINE SUCCINATE
  22. HERBALS\TURMERIC [Concomitant]
     Active Substance: HERBALS\TURMERIC
  23. ALLEGRA ALLERGY [Concomitant]
     Active Substance: FEXOFENADINE HYDROCHLORIDE
  24. AZELASTINE [Concomitant]
     Active Substance: AZELASTINE
  25. PREDNISONE [Concomitant]
     Active Substance: PREDNISONE
  26. TRELEGY ELLIPTA [Concomitant]
     Active Substance: FLUTICASONE FUROATE\UMECLIDINIUM BROMIDE\VILANTEROL TRIFENATATE
  27. AMLODIPINE [Concomitant]
     Active Substance: AMLODIPINE BESYLATE
  28. VITAMIN B12 [Concomitant]
     Active Substance: CYANOCOBALAMIN
  29. VITAMIN D3 [Concomitant]
     Active Substance: CHOLECALCIFEROL
  30. COENZYME Q10 [Concomitant]
     Active Substance: DIETARY SUPPLEMENT\UBIDECARENONE
  31. VITAMIN C [Concomitant]
     Active Substance: ASCORBIC ACID
  32. ZINC OXIDE [Concomitant]
     Active Substance: ZINC OXIDE

REACTIONS (3)
  - Off label use [Unknown]
  - Blood cholesterol increased [Unknown]
  - Hypertension [Unknown]
